FAERS Safety Report 7637311-2 (Version None)
Quarter: 2011Q3

REPORT INFORMATION
  Report Type: 
  Country: None (occurrence: None)
  Receive Date: 20110726
  Receipt Date: 20110713
  Transmission Date: 20111222
  Serious: Yes (Hospitalization, Other)
  Sender: FDA-Public Use
  Company Number: US-ELI_LILLY_AND_COMPANY-US201106005742

PATIENT
  Sex: Female
  Weight: 51.6 kg

DRUGS (7)
  1. FORTEO [Suspect]
     Dosage: 20 UG, QD
  2. COUMADIN [Concomitant]
  3. DIURETICS [Concomitant]
  4. ANTIHYPERTENSIVES [Concomitant]
  5. BUSPAR [Concomitant]
  6. PROTONIX [Concomitant]
  7. FORTEO [Suspect]
     Indication: OSTEOPOROSIS
     Dosage: 20 UG, QD
     Dates: start: 20110608

REACTIONS (14)
  - PULMONARY EMBOLISM [None]
  - INTERNATIONAL NORMALISED RATIO INCREASED [None]
  - HEART RATE INCREASED [None]
  - ABDOMINAL DISCOMFORT [None]
  - ANXIETY [None]
  - ACUTE MYOCARDIAL INFARCTION [None]
  - PULMONARY HYPERTENSION [None]
  - ATRIAL SEPTAL DEFECT [None]
  - BLOOD PRESSURE DECREASED [None]
  - STRESS CARDIOMYOPATHY [None]
  - LUNG NEOPLASM [None]
  - ANGINA PECTORIS [None]
  - DIZZINESS [None]
  - PULMONARY HAEMORRHAGE [None]
